FAERS Safety Report 24218638 (Version 3)
Quarter: 2025Q2

REPORT INFORMATION
  Report Type: Report from Study
  Country: CA (occurrence: CA)
  Receive Date: 20240816
  Receipt Date: 20250530
  Transmission Date: 20250717
  Serious: Yes (Hospitalization, Other)
  Sender: TAKEDA
  Company Number: CA-TAKEDA-2023TUS015123

PATIENT
  Sex: Female
  Weight: 59 kg

DRUGS (32)
  1. HUMAN IMMUNOGLOBULIN G [Suspect]
     Active Substance: HUMAN IMMUNOGLOBULIN G
     Indication: Primary immunodeficiency syndrome
     Dosage: 9 GRAM, 1/WEEK
  2. HUMAN IMMUNOGLOBULIN G [Suspect]
     Active Substance: HUMAN IMMUNOGLOBULIN G
     Indication: Immunodeficiency common variable
     Dosage: 14 GRAM, 1/WEEK
  3. HUMAN IMMUNOGLOBULIN G [Suspect]
     Active Substance: HUMAN IMMUNOGLOBULIN G
     Dosage: 14 GRAM, 1/WEEK
  4. HUMAN IMMUNOGLOBULIN G [Suspect]
     Active Substance: HUMAN IMMUNOGLOBULIN G
     Dosage: 16 GRAM, 1/WEEK
  5. HUMAN IMMUNOGLOBULIN G [Suspect]
     Active Substance: HUMAN IMMUNOGLOBULIN G
     Dosage: 24 GRAM, 1/WEEK
     Dates: start: 20200316
  6. GABAPENTIN [Concomitant]
     Active Substance: GABAPENTIN
     Dosage: 1600 MILLIGRAM, TID
  7. TRAMADOL HYDROCHLORIDE [Concomitant]
     Active Substance: TRAMADOL HYDROCHLORIDE
     Dosage: 300 MILLIGRAM, QD
  8. NABILONE [Concomitant]
     Active Substance: NABILONE
  9. ZOPICLONE [Concomitant]
     Active Substance: ZOPICLONE
     Dosage: UNK UNK, QD
  10. SEROQUEL [Concomitant]
     Active Substance: QUETIAPINE FUMARATE
  11. ATIVAN [Concomitant]
     Active Substance: LORAZEPAM
  12. MONTELUKAST SODIUM [Concomitant]
     Active Substance: MONTELUKAST SODIUM
  13. VENTOLIN [Concomitant]
     Active Substance: ALBUTEROL SULFATE
     Dosage: UNK UNK, QD
  14. SPIRIVA [Concomitant]
     Active Substance: TIOTROPIUM BROMIDE MONOHYDRATE
  15. FLONASE [Concomitant]
     Active Substance: FLUTICASONE PROPIONATE
  16. MYRBETRIQ [Concomitant]
     Active Substance: MIRABEGRON
  17. Celeco [Concomitant]
  18. NUCALA [Concomitant]
     Active Substance: MEPOLIZUMAB
  19. AZITHROMYCIN [Concomitant]
     Active Substance: AZITHROMYCIN
  20. Reactine [Concomitant]
  21. LORAZEPAM [Concomitant]
     Active Substance: LORAZEPAM
  22. TRAMADOL [Concomitant]
     Active Substance: TRAMADOL
  23. CELECOXIB [Concomitant]
     Active Substance: CELECOXIB
  24. MIRTAZAPINE [Concomitant]
     Active Substance: MIRTAZAPINE
  25. QUETIAPINE [Concomitant]
     Active Substance: QUETIAPINE
  26. SINGULAIR [Concomitant]
     Active Substance: MONTELUKAST SODIUM
  27. ASPIRIN [Concomitant]
     Active Substance: ASPIRIN
  28. ALVESCO [Concomitant]
     Active Substance: CICLESONIDE
  29. ZOPICLONE [Concomitant]
     Active Substance: ZOPICLONE
  30. CITALOPRAM [Concomitant]
     Active Substance: CITALOPRAM
  31. BREO ELLIPTA [Concomitant]
     Active Substance: FLUTICASONE FUROATE\VILANTEROL TRIFENATATE
     Dosage: 1 DOSAGE FORM, QD
  32. MIRTAZAPINE [Concomitant]
     Active Substance: MIRTAZAPINE

REACTIONS (11)
  - Lung neoplasm malignant [Unknown]
  - Viral upper respiratory tract infection [Unknown]
  - Blood immunoglobulin G decreased [Unknown]
  - Weight increased [Unknown]
  - Infection [Unknown]
  - Product dose omission issue [Unknown]
  - Rhinorrhoea [Unknown]
  - Oxygen saturation decreased [Unknown]
  - Cough [Unknown]
  - Dyspnoea [Unknown]
  - Diarrhoea [Unknown]
